FAERS Safety Report 25853725 (Version 1)
Quarter: 2025Q3

REPORT INFORMATION
  Report Type: Spontaneous
  Country: RU (occurrence: RU)
  Receive Date: 20250926
  Receipt Date: 20250926
  Transmission Date: 20251021
  Serious: Yes (Life-Threatening, Hospitalization)
  Sender: NOVARTIS
  Company Number: RU-002147023-NVSC2025RU147197

PATIENT
  Age: 89 Year
  Sex: Female
  Weight: 110 kg

DRUGS (1)
  1. SACUBITRIL\VALSARTAN [Suspect]
     Active Substance: SACUBITRIL\VALSARTAN
     Indication: Cardiac failure congestive
     Dosage: 100 MG, BID
     Route: 048

REACTIONS (5)
  - Angioedema [Not Recovered/Not Resolved]
  - Dyspnoea [Not Recovered/Not Resolved]
  - Mouth swelling [Not Recovered/Not Resolved]
  - Condition aggravated [Unknown]
  - Stupor [Unknown]

NARRATIVE: CASE EVENT DATE: 20250905
